FAERS Safety Report 10928509 (Version 1)
Quarter: 2015Q1

REPORT INFORMATION
  Report Type: Spontaneous
  Country: JP (occurrence: JP)
  Receive Date: 20150319
  Receipt Date: 20150319
  Transmission Date: 20150721
  Serious: Yes (Other)
  Sender: FDA-Public Use
  Company Number: JP-MYLANLABS-2015M1008652

PATIENT

DRUGS (2)
  1. VALPROATE SEMISODIUM [Suspect]
     Active Substance: DIVALPROEX SODIUM
     Indication: OFF LABEL USE
  2. VALPROATE SEMISODIUM [Suspect]
     Active Substance: DIVALPROEX SODIUM
     Indication: LENNOX-GASTAUT SYNDROME
     Dosage: 1400 MG/DAY (28 MG/KG/DAY)
     Route: 050

REACTIONS (2)
  - Thrombocytopenia [Recovered/Resolved]
  - Neutrophil Pelger-Huet anomaly present [Recovered/Resolved]
